FAERS Safety Report 15334993 (Version 1)
Quarter: 2018Q3

REPORT INFORMATION
  Report Type: Report from Study
  Country: US (occurrence: US)
  Receive Date: 20180830
  Receipt Date: 20180830
  Transmission Date: 20181010
  Serious: Yes (Hospitalization, Other)
  Sender: FDA-Public Use
  Company Number: US-MYLANLABS-2018M1064343

PATIENT
  Age: 2 Year
  Sex: Male
  Weight: 18.4 kg

DRUGS (7)
  1. PERAMPANEL [Suspect]
     Active Substance: PERAMPANEL
     Indication: EPILEPSY
     Dosage: 1 ML, QD (1ML,1 1 IN 2)
     Route: 048
     Dates: start: 20180627
  2. PERAMPANEL [Suspect]
     Active Substance: PERAMPANEL
     Dosage: 2 ML, QD
     Route: 048
     Dates: start: 20180704
  3. PERAMPANEL [Suspect]
     Active Substance: PERAMPANEL
     Dosage: 12 ML, QD
     Route: 048
     Dates: start: 20180725
  4. VALPROIC ACID. [Suspect]
     Active Substance: VALPROIC ACID
     Indication: EPILEPSY
     Dosage: 175 MG, TID
     Route: 048
     Dates: start: 20180309
  5. PERAMPANEL [Suspect]
     Active Substance: PERAMPANEL
     Dosage: 8 ML, QD
     Route: 048
     Dates: start: 20180718
  6. PERAMPANEL [Suspect]
     Active Substance: PERAMPANEL
     Dosage: 4 ML, QD
     Route: 048
     Dates: start: 20180711
  7. PERAMPANEL [Suspect]
     Active Substance: PERAMPANEL
     Dosage: 16 ML, UNK
     Route: 048
     Dates: start: 20180808

REACTIONS (1)
  - Seizure [Recovered/Resolved]

NARRATIVE: CASE EVENT DATE: 20180806
